FAERS Safety Report 9693327 (Version 2)
Quarter: 2013Q4

REPORT INFORMATION
  Report Type: Spontaneous
  Country: JP (occurrence: JP)
  Receive Date: 20131118
  Receipt Date: 20131118
  Transmission Date: 20140711
  Serious: Yes (Hospitalization)
  Sender: FDA-Public Use
  Company Number: JP-ROCHE-1266992

PATIENT
  Age: 87 Year
  Sex: Male

DRUGS (7)
  1. RITUXIMAB [Suspect]
     Indication: PRIMARY EFFUSION LYMPHOMA
     Dosage: 2ND DOSE :27 AUG 2010, 3RD DOSE:17 SEP 2010, 4TH DOSE:24 SEP 2010, 5TH DOSEL:05 OCT 2010, 06TH DOSE:
     Route: 042
     Dates: start: 20100806
  2. PREDONINE [Concomitant]
     Indication: LYMPHOMA
     Route: 042
     Dates: start: 20100803, end: 20100805
  3. PYRINAZIN [Concomitant]
     Indication: PROPHYLAXIS
     Route: 048
     Dates: start: 20100806, end: 20101026
  4. PURSENNID [Concomitant]
     Indication: CONSTIPATION PROPHYLAXIS
     Dosage: DAILY
     Route: 048
     Dates: start: 20100727
  5. BERIZYM [Concomitant]
     Route: 048
     Dates: start: 20100727, end: 20110328
  6. MUCOSTA [Concomitant]
     Dosage: DAILY
     Route: 048
     Dates: start: 20100727, end: 20101115
  7. NEUFAN [Concomitant]
     Dosage: DAILY
     Route: 048
     Dates: start: 20100805, end: 20100901

REACTIONS (1)
  - Pneumothorax [Recovered/Resolved]
